FAERS Safety Report 6432745-6 (Version None)
Quarter: 2009Q4

REPORT INFORMATION
  Report Type: 
  Country: None (occurrence: None)
  Receive Date: 20091109
  Receipt Date: 20091030
  Transmission Date: 20100525
  Serious: Yes (Other)
  Sender: FDA-Public Use
  Company Number: B0602358A

PATIENT
  Sex: Male

DRUGS (1)
  1. ALLI [Suspect]
     Route: 065

REACTIONS (2)
  - ABDOMINAL PAIN UPPER [None]
  - COLITIS ULCERATIVE [None]
